FAERS Safety Report 19807660 (Version 3)
Quarter: 2022Q2

REPORT INFORMATION
  Report Type: Report from Study
  Country: KR (occurrence: None)
  Receive Date: 20210908
  Receipt Date: 20220405
  Transmission Date: 20220721
  Serious: Yes (Hospitalization)
  Sender: FDA-Public Use
  Company Number: KR-EISAI MEDICAL RESEARCH-EC-2021-099206

PATIENT
  Sex: Male

DRUGS (13)
  1. LENVIMA [Suspect]
     Active Substance: LENVATINIB
     Indication: Hepatocellular carcinoma
     Route: 048
     Dates: start: 20210409, end: 20210412
  2. LENVIMA [Suspect]
     Active Substance: LENVATINIB
     Route: 048
     Dates: start: 20210416, end: 20210606
  3. LENVIMA [Suspect]
     Active Substance: LENVATINIB
     Route: 048
     Dates: start: 20210611, end: 20210819
  4. LENVIMA [Suspect]
     Active Substance: LENVATINIB
     Route: 048
     Dates: start: 20210903, end: 20211124
  5. LENVIMA [Suspect]
     Active Substance: LENVATINIB
     Route: 048
     Dates: start: 20211125
  6. URSODIOL [Concomitant]
     Active Substance: URSODIOL
     Indication: Hepatic cirrhosis
     Route: 048
     Dates: start: 20210409
  7. LIVIDI [Concomitant]
     Indication: Hepatic cirrhosis
     Route: 048
     Dates: start: 20210409
  8. LIRECTAN [Concomitant]
     Indication: Blood albumin decreased
     Route: 048
     Dates: start: 20210430
  9. LASIX [Concomitant]
     Active Substance: FUROSEMIDE
     Indication: Hypertension
     Route: 048
     Dates: start: 20210503, end: 20210515
  10. LASIX [Concomitant]
     Active Substance: FUROSEMIDE
     Route: 048
     Dates: start: 20210516
  11. ALDACTONE [Concomitant]
     Active Substance: SPIRONOLACTONE
     Indication: Hypertension
     Route: 048
     Dates: start: 20210519, end: 20211222
  12. DUPHALAC [Concomitant]
     Active Substance: LACTULOSE
     Indication: Hepatic encephalopathy
     Dates: start: 20210414, end: 20210416
  13. DUPHALAC [Concomitant]
     Active Substance: LACTULOSE
     Dates: start: 20210430, end: 20210915

REACTIONS (2)
  - Diarrhoea [Recovered/Resolved]
  - Abdominal distension [Recovered/Resolved]

NARRATIVE: CASE EVENT DATE: 20210801
